FAERS Safety Report 8530177-8 (Version None)
Quarter: 2012Q3

REPORT INFORMATION
  Report Type: 
  Country: None (occurrence: None)
  Receive Date: 20120710
  Receipt Date: 20120627
  Transmission Date: 20120928
  Serious: Yes (Other)
  Sender: FDA-Public Use
  Company Number: 2010JP001173

PATIENT
  Age: 10 Year
  Sex: Male

DRUGS (4)
  1. CYCLOPHOSPHAMIDE [Concomitant]
  2. METHOTREXATE SODIUM [Concomitant]
  3. METHYLPREDNISOLONE (METHYLPREDNISONE) [Concomitant]
  4. PROGRAF [Suspect]
     Indication: PROPHYLAXIS AGAINST GRAFT VERSUS HOST DISEASE

REACTIONS (11)
  - CHRONIC GRAFT VERSUS HOST DISEASE [None]
  - DRUG INEFFECTIVE [None]
  - PANCREATIC PSEUDOCYST [None]
  - HYPERTENSION [None]
  - HAEMATURIA [None]
  - THROMBOTIC MICROANGIOPATHY [None]
  - IDIOPATHIC THROMBOCYTOPENIC PURPURA [None]
  - TOXIC ENCEPHALOPATHY [None]
  - CATARACT [None]
  - ACUTE GRAFT VERSUS HOST DISEASE [None]
  - PANCREATITIS [None]
